FAERS Safety Report 24314877 (Version 1)
Quarter: 2024Q3

REPORT INFORMATION
  Report Type: Spontaneous
  Country: PL (occurrence: PL)
  Receive Date: 20240913
  Receipt Date: 20240913
  Transmission Date: 20241016
  Serious: Yes (Other)
  Sender: ROCHE
  Company Number: PL-ROCHE-10000072909

PATIENT
  Age: 65 Year
  Sex: Female

DRUGS (1)
  1. MOSUNETUZUMAB [Suspect]
     Active Substance: MOSUNETUZUMAB
     Indication: Follicular lymphoma stage III
     Dosage: CYCLE 1: MOSUNETUZUMAB INFUSION AT A DOSE OF: 1 MG ON DAY 1, CYCLE 1; 2 MG ON DAY 8, CYCLE 1; AND 60
     Route: 042
     Dates: start: 202401

REACTIONS (1)
  - Disease progression [Unknown]
